FAERS Safety Report 10047664 (Version 1)
Quarter: 2014Q1

REPORT INFORMATION
  Report Type: Spontaneous
  Country: CL (occurrence: CL)
  Receive Date: 20140331
  Receipt Date: 20140331
  Transmission Date: 20141002
  Serious: Yes (Other)
  Sender: FDA-Public Use
  Company Number: CL-PFIZER INC-2014086921

PATIENT
  Age: 96 Year
  Sex: Male

DRUGS (1)
  1. XALATAN [Suspect]
     Indication: CATARACT OPERATION
     Dosage: 1 DROP, 1X/DAY
     Route: 047
     Dates: start: 2005, end: 201310

REACTIONS (3)
  - Deafness [Not Recovered/Not Resolved]
  - Cataract [Unknown]
  - Off label use [Not Recovered/Not Resolved]
